FAERS Safety Report 12917752 (Version 5)
Quarter: 2017Q3

REPORT INFORMATION
  Report Type: Spontaneous
  Country: US (occurrence: US)
  Receive Date: 20161107
  Receipt Date: 20170719
  Transmission Date: 20171127
  Serious: Yes (Other)
  Sender: FDA-Public Use
  Company Number: US-PFIZER INC-2016512731

PATIENT
  Age: 60 Year
  Sex: Female

DRUGS (14)
  1. IBRANCE [Suspect]
     Active Substance: PALBOCICLIB
     Dosage: 75 MG, CYCLIC (EVERY DAY ON DAYS 1 THROUGH 21 OF A 28 DAY CYCLE)
     Route: 048
  2. VITAMIN D [Concomitant]
     Active Substance: CHOLECALCIFEROL
     Dosage: UNK
  3. PROZAC [Concomitant]
     Active Substance: FLUOXETINE HYDROCHLORIDE
     Dosage: UNK
  4. IBRANCE [Suspect]
     Active Substance: PALBOCICLIB
     Indication: BREAST CANCER FEMALE
     Dosage: 125 MG, DAILY
     Route: 048
     Dates: start: 20161007
  5. TYLENOL SINUS CONGESTION [Concomitant]
     Dosage: UNK
  6. ZOFRAN [Concomitant]
     Active Substance: ONDANSETRON HYDROCHLORIDE
     Dosage: UNK
  7. VYVANSE [Concomitant]
     Active Substance: LISDEXAMFETAMINE DIMESYLATE
     Dosage: UNK
  8. VITAMIN B COMPLEX [Concomitant]
     Active Substance: CYANOCOBALAMIN\DEXPANTHENOL\NIACINAMIDE\PYRIDOXINE HYDROCHLORIDE\RIBOFLAVIN 5^-PHOSPHATE SODIUM\THIAMINE HYDROCHLORIDE\VITAMIN B COMPLEX
     Dosage: UNK
  9. TYLENOL [Concomitant]
     Active Substance: ACETAMINOPHEN
     Dosage: UNK
  10. LETROZOLE. [Concomitant]
     Active Substance: LETROZOLE
     Dosage: UNK
  11. VENLAFAXINE HCL [Concomitant]
     Active Substance: VENLAFAXINE HYDROCHLORIDE
     Dosage: UNK
  12. IBRANCE [Suspect]
     Active Substance: PALBOCICLIB
     Dosage: 100 MG, CYCLIC  (21 DAYS FOLLOWED BY 7 DAYS OFF)
     Route: 048
     Dates: start: 20161020
  13. CLARITIN [Concomitant]
     Active Substance: LORATADINE
     Dosage: UNK
  14. EFFEXOR [Concomitant]
     Active Substance: VENLAFAXINE HYDROCHLORIDE
     Dosage: UNK

REACTIONS (11)
  - Dry mouth [Unknown]
  - Epistaxis [Unknown]
  - Fatigue [Unknown]
  - Alopecia [Unknown]
  - Dysgeusia [Unknown]
  - Nausea [Not Recovered/Not Resolved]
  - Cellulitis [Unknown]
  - Stomatitis [Unknown]
  - Pain [Unknown]
  - Full blood count decreased [Unknown]
  - Lymph node pain [Unknown]

NARRATIVE: CASE EVENT DATE: 20161102
